FAERS Safety Report 4730727-3 (Version None)
Quarter: 2005Q3

REPORT INFORMATION
  Report Type: 
  Country: None (occurrence: None)
  Receive Date: 20050725
  Receipt Date: 20050223
  Transmission Date: 20060218
  Serious: No
  Sender: FDA-Public Use
  Company Number: USA050291658

PATIENT
  Age: 8 Year
  Sex: Female
  Weight: 35 kg

DRUGS (3)
  1. STRATTERA [Suspect]
     Dosage: 40 MG DAY
     Dates: start: 20050222
  2. LAMICTAL [Concomitant]
  3. RITALIN [Concomitant]

REACTIONS (2)
  - SOMNOLENCE [None]
  - STOMACH DISCOMFORT [None]
